FAERS Safety Report 18292335 (Version 1)
Quarter: 2020Q3

REPORT INFORMATION
  Report Type: Spontaneous
  Country: GD (occurrence: GD)
  Receive Date: 20200922
  Receipt Date: 20200922
  Transmission Date: 20201103
  Serious: Yes (Life-Threatening, Hospitalization, Other)
  Sender: FDA-Public Use
  Company Number: GD-LUPIN PHARMACEUTICALS INC.-2020-06183

PATIENT
  Age: 8 Year
  Sex: Male
  Weight: 45 kg

DRUGS (3)
  1. HYDROXYCHLOROQUINE [Suspect]
     Active Substance: HYDROXYCHLOROQUINE
     Indication: COVID-19
     Dosage: 200 MILLIGRAM?A 5?DAY COURSE
     Route: 048
     Dates: start: 202004
  2. AMOXICILLIN. [Suspect]
     Active Substance: AMOXICILLIN
     Indication: PAEDIATRIC AUTOIMMUNE NEUROPSYCHIATRIC DISORDERS ASSOCIATED WITH STREPTOCOCCAL INFECTION
     Dosage: UNK?A 10?DAY COURSE
     Route: 065
     Dates: start: 202004, end: 202004
  3. CEFDINIR. [Suspect]
     Active Substance: CEFDINIR
     Indication: PAEDIATRIC AUTOIMMUNE NEUROPSYCHIATRIC DISORDERS ASSOCIATED WITH STREPTOCOCCAL INFECTION
     Dosage: UNK?FOR 5 DAYS
     Route: 065
     Dates: start: 202004, end: 202004

REACTIONS (2)
  - Status epilepticus [Recovered/Resolved]
  - Off label use [Unknown]

NARRATIVE: CASE EVENT DATE: 202004
